FAERS Safety Report 4978631-X (Version None)
Quarter: 2006Q2

REPORT INFORMATION
  Report Type: 
  Country: None (occurrence: None)
  Receive Date: 20060420
  Receipt Date: 20050418
  Transmission Date: 20061013
  Serious: Yes (Hospitalization, Disabling)
  Sender: FDA-Public Use
  Company Number: US-MERCK-0504USA03502

PATIENT
  Age: 80 Year
  Sex: Female
  Weight: 65 kg

DRUGS (5)
  1. VIOXX [Suspect]
     Indication: ARTHRITIS
     Route: 048
     Dates: start: 20010701, end: 20040101
  2. SYNTHROID [Concomitant]
     Indication: HYPOTHYROIDISM
     Route: 065
  3. DIOVAN [Concomitant]
     Indication: HYPERTENSION
     Route: 065
  4. METHYLDOPA W/HCTZ [Concomitant]
     Indication: HYPERTENSION
     Route: 065
  5. GLUCOTROL XL [Concomitant]
     Indication: DIABETES MELLITUS NON-INSULIN-DEPENDENT
     Route: 065

REACTIONS (27)
  - AMNESIA [None]
  - ARTERIOSCLEROSIS CORONARY ARTERY [None]
  - ATRIAL FIBRILLATION [None]
  - BLOOD THYROID STIMULATING HORMONE DECREASED [None]
  - BRAIN NATRIURETIC PEPTIDE INCREASED [None]
  - CARDIAC FAILURE CONGESTIVE [None]
  - CAROTID ARTERY STENOSIS [None]
  - CEREBRAL ATROPHY [None]
  - CEREBRAL INFARCTION [None]
  - CEREBROVASCULAR ACCIDENT [None]
  - CHRONIC OBSTRUCTIVE PULMONARY DISEASE [None]
  - CONFUSIONAL STATE [None]
  - DEHYDRATION [None]
  - DEMENTIA ALZHEIMER'S TYPE [None]
  - DEPRESSION [None]
  - ELDER ABUSE [None]
  - HAEMOGLOBIN DECREASED [None]
  - HEMIANOPIA [None]
  - LOWER RESPIRATORY TRACT INFECTION [None]
  - MENTAL STATUS CHANGES [None]
  - PNEUMONIA [None]
  - PULMONARY HYPERTENSION [None]
  - SLEEP APNOEA SYNDROME [None]
  - SUPRAVENTRICULAR EXTRASYSTOLES [None]
  - TRICUSPID VALVE INCOMPETENCE [None]
  - VENTRICULAR DYSFUNCTION [None]
  - VENTRICULAR HYPERTROPHY [None]
